FAERS Safety Report 9445787 (Version 1)
Quarter: 2013Q3

REPORT INFORMATION
  Report Type: Spontaneous
  Country: US (occurrence: US)
  Receive Date: 20130807
  Receipt Date: 20130807
  Transmission Date: 20140515
  Serious: No
  Sender: FDA-Public Use
  Company Number: US-BAYER-2013-095630

PATIENT
  Sex: 0

DRUGS (3)
  1. BAYER GENUINE ASPIRIN ORIGINAL STRENGTH [Suspect]
  2. ALEVE CAPLET [Suspect]
  3. IBUPROFEN [Suspect]

REACTIONS (1)
  - Eye swelling [None]
